FAERS Safety Report 5484961-8 (Version None)
Quarter: 2007Q4

REPORT INFORMATION
  Report Type: 
  Country: None (occurrence: None)
  Receive Date: 20071010
  Receipt Date: 20070928
  Transmission Date: 20080405
  Serious: Yes (Hospitalization)
  Sender: FDA-Public Use
  Company Number: TCI2007A04147

PATIENT
  Age: 36 Year
  Sex: Male

DRUGS (3)
  1. ACTOS [Suspect]
     Indication: DIABETES MELLITUS
     Dosage: 30 MG (30 MG, 1 IN 1 D) PER ORAL
     Route: 048
     Dates: start: 20070501, end: 20070809
  2. AMARYL [Concomitant]
  3. BAYSLOWTH (VOGLIBOSE) [Concomitant]

REACTIONS (2)
  - HEPATITIS A [None]
  - LIVER DISORDER [None]
